FAERS Safety Report 23035280 (Version 1)
Quarter: 2023Q4

REPORT INFORMATION
  Report Type: Spontaneous
  Country: AT (occurrence: AT)
  Receive Date: 20231005
  Receipt Date: 20231005
  Transmission Date: 20240110
  Serious: Yes (Hospitalization)
  Sender: FDA-Public Use
  Company Number: AT-BoehringerIngelheim-2023-BI-264433

PATIENT
  Age: 83 Year
  Sex: Female

DRUGS (1)
  1. DABIGATRAN [Suspect]
     Active Substance: DABIGATRAN
     Indication: Atrial fibrillation

REACTIONS (4)
  - Hemiparesis [Recovered/Resolved]
  - Aphasia [Recovered/Resolved]
  - Brain stem ischaemia [Recovered/Resolved]
  - Cerebral microangiopathy [Recovered/Resolved]
